FAERS Safety Report 8573249 (Version 4)
Quarter: 2014Q2

REPORT INFORMATION
  Report Type: Spontaneous
  Country: US (occurrence: US)
  Receive Date: 20120522
  Receipt Date: 20140528
  Transmission Date: 20141212
  Serious: No
  Sender: FDA-Public Use
  Company Number: US-PFIZER INC-2012119612

PATIENT
  Age: 51 Year
  Sex: Female

DRUGS (8)
  1. ZITHROMAX [Suspect]
     Dosage: UNK
  2. RIFAMPIN [Suspect]
     Dosage: UNK
  3. VANCOMYCIN HCL [Suspect]
     Dosage: UNK
  4. HYDROCHLOROTHIAZIDE [Suspect]
     Dosage: UNK
  5. CODEINE [Suspect]
     Dosage: UNK
  6. ISONIAZID [Suspect]
     Dosage: UNK
  7. CINOBAC [Suspect]
     Dosage: UNK
  8. PROMETHAZINE HYDROCHLORIDE [Suspect]
     Dosage: UNK

REACTIONS (1)
  - Hypersensitivity [Unknown]
